FAERS Safety Report 9474080 (Version 2)
Quarter: 2013Q3

REPORT INFORMATION
  Report Type: Report from Study
  Country: IT (occurrence: IT)
  Receive Date: 20130823
  Receipt Date: 20130823
  Transmission Date: 20140515
  Serious: Yes (Death)
  Sender: FDA-Public Use
  Company Number: IT-EXELIXIS-XL18413002615

PATIENT
  Age: 66 Year
  Sex: Male
  Weight: 95 kg

DRUGS (9)
  1. XL184 [Suspect]
     Indication: PROSTATE CANCER
     Dosage: 60 MG, QD
     Route: 048
     Dates: start: 20130408, end: 20130418
  2. XL184 [Suspect]
     Indication: PROSTATE CANCER
     Dosage: 5 MG, BID
     Route: 048
     Dates: start: 20130408, end: 20130418
  3. LANSOPRAZOL [Concomitant]
  4. LERCANIDIPINA [Concomitant]
  5. BISOPROLOL [Concomitant]
  6. CALCIUM SANDOZ D [Concomitant]
  7. ELIGARD [Concomitant]
  8. CO-EFFERALGAN [Concomitant]
  9. MORPHINE [Concomitant]

REACTIONS (1)
  - Death [Fatal]
